FAERS Safety Report 16878267 (Version 2)
Quarter: 2019Q4

REPORT INFORMATION
  Report Type: Spontaneous
  Country: FR (occurrence: FR)
  Receive Date: 20191002
  Receipt Date: 20191029
  Transmission Date: 20200122
  Serious: Yes (Other)
  Sender: FDA-Public Use
  Company Number: FR-JNJFOC-20190939466

PATIENT
  Age: 44 Year
  Sex: Male

DRUGS (1)
  1. RIVAROXABAN [Suspect]
     Active Substance: RIVAROXABAN
     Indication: DEEP VEIN THROMBOSIS
     Dosage: UNK
     Route: 048
     Dates: start: 20180928, end: 20190628

REACTIONS (3)
  - Negative thoughts [Recovered/Resolved]
  - Major depression [Unknown]
  - Weight increased [Unknown]

NARRATIVE: CASE EVENT DATE: 201902
